FAERS Safety Report 5993146-8 (Version None)
Quarter: 2008Q4

REPORT INFORMATION
  Report Type: 
  Country: None (occurrence: None)
  Receive Date: 20081210
  Receipt Date: 20081210
  Transmission Date: 20090506
  Serious: No
  Sender: FDA-Public Use
  Company Number: None

PATIENT
  Age: 13 Year
  Sex: Female
  Weight: 57.1532 kg

DRUGS (1)
  1. ADDERALL 20 [Suspect]
     Indication: ATTENTION DEFICIT/HYPERACTIVITY DISORDER
     Dosage: 20 MG WITH BREAKFAST PO 20 MG AT NOON PO
     Route: 048
     Dates: start: 20060801, end: 20081209

REACTIONS (9)
  - ANOREXIA [None]
  - APATHY [None]
  - DISTURBANCE IN SOCIAL BEHAVIOUR [None]
  - DIZZINESS POSTURAL [None]
  - DRUG DEPENDENCE [None]
  - EATING DISORDER [None]
  - FLAT AFFECT [None]
  - INSOMNIA [None]
  - WEIGHT INCREASED [None]
